FAERS Safety Report 7829021-3 (Version None)
Quarter: 2011Q4

REPORT INFORMATION
  Report Type: 
  Country: None (occurrence: None)
  Receive Date: 20111020
  Receipt Date: 20111007
  Transmission Date: 20120403
  Serious: Yes (Hospitalization, Other)
  Sender: FDA-Public Use
  Company Number: PL-MYLANLABS-2011S1021347

PATIENT
  Age: 56 Year

DRUGS (4)
  1. BUDESONIDE [Suspect]
     Indication: CHRONIC OBSTRUCTIVE PULMONARY DISEASE
     Route: 055
  2. FORMOTEROL FUMARATE [Concomitant]
     Indication: CHRONIC OBSTRUCTIVE PULMONARY DISEASE
     Route: 055
  3. BETAMETHASONE [Suspect]
     Indication: CHRONIC OBSTRUCTIVE PULMONARY DISEASE
     Dosage: EVERY 2-4 WEEKS
  4. HYDROCORTISONE HEMISUCCINATE [Suspect]
     Indication: SHOCK
     Route: 042

REACTIONS (2)
  - ADRENAL INSUFFICIENCY [None]
  - OSTEOPOROSIS [None]
